FAERS Safety Report 4675791-5 (Version None)
Quarter: 2005Q2

REPORT INFORMATION
  Report Type: 
  Country: None (occurrence: None)
  Receive Date: 20050527
  Receipt Date: 20050517
  Transmission Date: 20051028
  Serious: Yes (Hospitalization)
  Sender: FDA-Public Use
  Company Number: FR-SANOFI-SYNTHELABO-F01200500771

PATIENT
  Sex: Male
  Weight: 61 kg

DRUGS (8)
  1. OXALIPLATIN [Suspect]
     Indication: OESOPHAGEAL CARCINOMA
     Route: 042
     Dates: start: 20050510, end: 20050510
  2. FLUOROURACIL [Suspect]
     Route: 042
     Dates: start: 20050510, end: 20050510
  3. LEUCOVORIN CALCIUM [Suspect]
     Route: 042
     Dates: start: 20050510, end: 20050510
  4. DURAGESIC-100 [Suspect]
     Dosage: 25 MCG
     Route: 062
     Dates: end: 20050511
  5. ZESTRIL [Concomitant]
     Dosage: 20 MG
     Route: 048
  6. ZOCOR [Concomitant]
     Dosage: 20 MG
     Route: 048
  7. DUPHALAC [Concomitant]
     Dosage: 2 UNIT
     Route: 048
  8. TRIFLUCAN [Concomitant]
     Dosage: 100 MG
     Route: 048

REACTIONS (1)
  - SYNCOPE VASOVAGAL [None]
